FAERS Safety Report 16236704 (Version 5)
Quarter: 2019Q2

REPORT INFORMATION
  Report Type: Report from Study
  Country: None (occurrence: BE)
  Receive Date: 20190425
  Receipt Date: 20190516
  Transmission Date: 20190711
  Serious: Yes (Hospitalization)
  Sender: FDA-Public Use
  Company Number: BE-ABBVIE-19S-013-2687474-00

PATIENT
  Sex: Male

DRUGS (9)
  1. DUODOPA [Suspect]
     Active Substance: CARBIDOPA\LEVODOPA
     Indication: PARKINSON^S DISEASE
     Dosage: MD=13.5ML, CD=5.4ML/HR DURING 16HRS, ED=3.5ML
     Route: 050
     Dates: start: 20190215, end: 20190222
  2. DUODOPA [Suspect]
     Active Substance: CARBIDOPA\LEVODOPA
     Dosage: MD=13.5ML, CD=5.6ML/HR DURING 16HRS, ED=3.5ML
     Route: 050
     Dates: start: 20190222, end: 20190227
  3. DUODOPA [Suspect]
     Active Substance: CARBIDOPA\LEVODOPA
     Dosage: MD= 13.5ML CD= 5.3ML/HR DURING 16HRS ED= 4.5ML
     Route: 050
     Dates: end: 20190426
  4. DUODOPA [Suspect]
     Active Substance: CARBIDOPA\LEVODOPA
     Dosage: MD= 14.5ML CD= 5.3ML/HR DURING 16HRS ED= 4.5ML
     Route: 050
     Dates: start: 20190426
  5. STALEVO 150 [Concomitant]
     Indication: PRODUCT USED FOR UNKNOWN INDICATION
     Dosage: FORM STRENGTH: 150MG/37.5MG/200MG, ONCE A DAY, IF THE CASSETTE IS EMPTY
     Route: 065
  6. STALEVO [Concomitant]
     Active Substance: CARBIDOPA\ENTACAPONE\LEVODOPA
     Dosage: FORM STRENGTH: 200MG/50MG/200MG; RESCUE MEDICATION
     Route: 065
  7. STALEVO [Concomitant]
     Active Substance: CARBIDOPA\ENTACAPONE\LEVODOPA
     Indication: PARKINSON^S DISEASE
     Dosage: FORM STRENGTH: 200MG/50MG/200MG
     Route: 048
  8. DUODOPA [Suspect]
     Active Substance: CARBIDOPA\LEVODOPA
     Dosage: MD=13.5ML, CD=5.2ML/HR DURING 16HRS, ED=3.5ML
     Route: 050
     Dates: start: 20190227, end: 20190320
  9. DUODOPA [Suspect]
     Active Substance: CARBIDOPA\LEVODOPA
     Dosage: MD=13.5ML, CD=5.2ML/HR DURING 16HRS?ED=4.5ML
     Route: 050
     Dates: start: 20190320

REACTIONS (16)
  - Fall [Recovered/Resolved]
  - Back disorder [Unknown]
  - Gait disturbance [Recovering/Resolving]
  - Depression [Not Recovered/Not Resolved]
  - Mental disorder [Unknown]
  - Confusional state [Unknown]
  - Malaise [Not Recovered/Not Resolved]
  - Cognitive disorder [Unknown]
  - Fall [Recovered/Resolved]
  - Emotional disorder [Unknown]
  - Device dislocation [Unknown]
  - Freezing phenomenon [Recovering/Resolving]
  - Dyskinesia [Not Recovered/Not Resolved]
  - Stress [Unknown]
  - Confusional state [Not Recovered/Not Resolved]
  - Hallucination [Recovering/Resolving]

NARRATIVE: CASE EVENT DATE: 2019
